FAERS Safety Report 7270548-3 (Version None)
Quarter: 2011Q1

REPORT INFORMATION
  Report Type: 
  Country: None (occurrence: None)
  Receive Date: 20110125
  Receipt Date: 20110125
  Transmission Date: 20110831
  Serious: No
  Sender: FDA-Public Use
  Company Number: None

PATIENT
  Age: 66 Year
  Sex: Female
  Weight: 70.5 kg

DRUGS (1)
  1. ZOSYN [Suspect]

REACTIONS (1)
  - RASH GENERALISED [None]
